FAERS Safety Report 6245244-1 (Version None)
Quarter: 2009Q2

REPORT INFORMATION
  Report Type: 
  Country: None (occurrence: None)
  Receive Date: 20090623
  Receipt Date: 20090623
  Transmission Date: 20091009
  Serious: Yes (Hospitalization)
  Sender: FDA-Public Use
  Company Number: None

PATIENT
  Sex: Female
  Weight: 104 kg

DRUGS (2)
  1. ARIXTRA [Suspect]
     Indication: DEEP VEIN THROMBOSIS
     Dosage: DAILY SQ
     Route: 058
     Dates: start: 20090512, end: 20090516
  2. WARFARIN SODIUM [Suspect]

REACTIONS (3)
  - FALL [None]
  - HAEMATOMA [None]
  - SKIN GRAFT [None]
